FAERS Safety Report 18040595 (Version 1)
Quarter: 2020Q3

REPORT INFORMATION
  Report Type: Spontaneous
  Country: GB (occurrence: GB)
  Receive Date: 20200717
  Receipt Date: 20200717
  Transmission Date: 20201103
  Serious: Yes (Other)
  Sender: FDA-Public Use
  Company Number: GB-ASCEND THERAPEUTICS US, LLC-2087480

PATIENT
  Age: 51 Year
  Sex: Female

DRUGS (3)
  1. ESTROGEL [Suspect]
     Active Substance: ESTRADIOL
     Indication: PRODUCT USED FOR UNKNOWN INDICATION
     Route: 062
     Dates: start: 20200515
  2. OESTRODOSE (ESTRADIOL) (GEL)?DRUG USED FOR UNKNOWN INDICATION [Suspect]
     Active Substance: ESTRADIOL
     Route: 062
     Dates: start: 20200515
  3. ESTROGEL [Suspect]
     Active Substance: ESTRADIOL

REACTIONS (14)
  - Hot flush [Recovered/Resolved]
  - Menopausal symptoms [Recovered/Resolved]
  - Night sweats [Recovered/Resolved]
  - Panic attack [Recovered/Resolved]
  - Headache [Recovered/Resolved]
  - Product label on wrong product [Unknown]
  - Fatigue [Recovered/Resolved]
  - Palpitations [Recovered/Resolved]
  - Anxiety [Recovered/Resolved]
  - Dizziness postural [Recovered/Resolved]
  - Drug ineffective [Unknown]
  - Product dispensing error [Unknown]
  - Product substitution issue [Unknown]
  - Irritability [Recovered/Resolved]

NARRATIVE: CASE EVENT DATE: 20200522
